FAERS Safety Report 9024936 (Version 4)
Quarter: 2013Q2

REPORT INFORMATION
  Report Type: Spontaneous
  Country: US (occurrence: US)
  Receive Date: 20130121
  Receipt Date: 20130610
  Transmission Date: 20140414
  Serious: Yes (Hospitalization)
  Sender: FDA-Public Use
  Company Number: US-JNJFOC-20130104822

PATIENT
  Age: 42 Year
  Sex: Female
  Weight: 63 kg

DRUGS (2)
  1. REMICADE [Suspect]
     Indication: CROHN^S DISEASE
     Dosage: DOSE: ALSO REPORTED AS 600 MGV2: TOTAL DOSE 700 MG; NUMBER OF INFUSIONS RECEIVED 5
     Route: 042
     Dates: start: 20120619, end: 20120928
  2. VICODIN [Concomitant]
     Indication: PAIN
     Dosage: 7/750 MG
     Route: 048
     Dates: start: 20120913

REACTIONS (3)
  - Invasive ductal breast carcinoma [Recovering/Resolving]
  - Crohn^s disease [Unknown]
  - Malaise [Unknown]
